FAERS Safety Report 8906328 (Version 1)
Quarter: 2012Q4

REPORT INFORMATION
  Report Type: Spontaneous
  Country: US (occurrence: None)
  Receive Date: 20121112
  Receipt Date: 20121112
  Transmission Date: 20130627
  Serious: Yes (Life-Threatening)
  Sender: FDA-Public Use
  Company Number: None

PATIENT
  Age: 70 Year
  Sex: Male
  Weight: 84 kg

DRUGS (9)
  1. ISOTRETINOIN [Suspect]
     Indication: ALZHEIMER^S  DISEASE
     Route: 048
     Dates: start: 20120728, end: 20120906
  2. ARICEPT [Concomitant]
  3. LIPITOR [Concomitant]
  4. UNISOM [Concomitant]
  5. NAMENDA [Concomitant]
  6. VIAGRA [Concomitant]
  7. XANAX [Concomitant]
  8. ZANTAC [Concomitant]
  9. EXCEDRIN [Concomitant]

REACTIONS (2)
  - General physical health deterioration [None]
  - Glioblastoma [None]
